FAERS Safety Report 23420471 (Version 1)
Quarter: 2024Q1

REPORT INFORMATION
  Report Type: Spontaneous
  Country: JP (occurrence: JP)
  Receive Date: 20240119
  Receipt Date: 20240119
  Transmission Date: 20240409
  Serious: Yes (Death, Other)
  Sender: FDA-Public Use
  Company Number: JP-AMGEN-JPNSP2024009208

PATIENT

DRUGS (4)
  1. ROMOSOZUMAB [Suspect]
     Active Substance: ROMOSOZUMAB
     Indication: Osteoporosis
     Dosage: UNK
     Route: 065
  2. ROMOSOZUMAB [Suspect]
     Active Substance: ROMOSOZUMAB
  3. DENOSUMAB [Suspect]
     Active Substance: DENOSUMAB
     Indication: Osteoporosis
     Dosage: UNK
     Route: 065
  4. TERIPARATIDE [Suspect]
     Active Substance: TERIPARATIDE
     Indication: Osteoporosis
     Route: 065

REACTIONS (21)
  - Death [Fatal]
  - Cardiac failure congestive [Unknown]
  - Gastrointestinal haemorrhage [Unknown]
  - Deep vein thrombosis [Unknown]
  - Adrenal insufficiency [Unknown]
  - Cerebrovascular accident [Unknown]
  - Angina unstable [Unknown]
  - Gastrointestinal perforation [Unknown]
  - Respiratory failure [Unknown]
  - Acute coronary syndrome [Unknown]
  - Renal failure [Unknown]
  - Delirium [Unknown]
  - Pneumonia [Unknown]
  - Hip fracture [Unknown]
  - Decreased appetite [Unknown]
  - Implantation complication [Unknown]
  - Infection [Unknown]
  - Anaemia [Unknown]
  - Decubitus ulcer [Unknown]
  - Urinary tract infection [Unknown]
  - Fall [Unknown]
